FAERS Safety Report 14713438 (Version 1)
Quarter: 2018Q2

REPORT INFORMATION
  Report Type: Spontaneous
  Country: FR (occurrence: FR)
  Receive Date: 20180404
  Receipt Date: 20180404
  Transmission Date: 20180711
  Serious: Yes (Other)
  Sender: FDA-Public Use
  Company Number: FR-MERCK KGAA-2045083

PATIENT
  Age: 57 Year
  Sex: Female
  Weight: 48 kg

DRUGS (1)
  1. NOVOTHYROX [Suspect]
     Active Substance: LEVOTHYROXINE SODIUM
     Indication: THYROIDECTOMY
     Route: 048

REACTIONS (9)
  - Meniere^s disease [Not Recovered/Not Resolved]
  - Photophobia [Not Recovered/Not Resolved]
  - Hyperacusis [Not Recovered/Not Resolved]
  - Nausea [Not Recovered/Not Resolved]
  - Headache [Not Recovered/Not Resolved]
  - Impaired work ability [Not Recovered/Not Resolved]
  - Malaise [Not Recovered/Not Resolved]
  - Blood thyroid stimulating hormone normal [Recovered/Resolved]
  - Vertigo [Not Recovered/Not Resolved]

NARRATIVE: CASE EVENT DATE: 2017
